FAERS Safety Report 5991311-7 (Version None)
Quarter: 2008Q4

REPORT INFORMATION
  Report Type: 
  Country: None (occurrence: None)
  Receive Date: 20081211
  Receipt Date: 20081204
  Transmission Date: 20090506
  Serious: Yes (Hospitalization, Other)
  Sender: FDA-Public Use
  Company Number: US-ELI_LILLY_AND_COMPANY-US200812001496

PATIENT
  Sex: Female

DRUGS (3)
  1. HUMALOG [Suspect]
  2. LANTUS [Concomitant]
  3. PLAVIX [Concomitant]

REACTIONS (8)
  - BLOOD GLUCOSE INCREASED [None]
  - CEREBROVASCULAR ACCIDENT [None]
  - DYSMORPHISM [None]
  - HYPOAESTHESIA ORAL [None]
  - MOANING [None]
  - MONOPARESIS [None]
  - MUSCULAR WEAKNESS [None]
  - VENOUS OCCLUSION [None]
